FAERS Safety Report 8566802-5 (Version None)
Quarter: 2012Q3

REPORT INFORMATION
  Report Type: 
  Country: None (occurrence: None)
  Receive Date: 20120803
  Receipt Date: 20111027
  Transmission Date: 20120928
  Serious: No
  Sender: FDA-Public Use
  Company Number: US-ABBOTT-11P-163-0869795-00

PATIENT
  Sex: Female
  Weight: 69.008 kg

DRUGS (11)
  1. FISH OIL [Concomitant]
     Indication: SUPPLEMENTATION THERAPY
  2. CRESTOR [Concomitant]
     Indication: BLOOD CHOLESTEROL INCREASED
     Dates: start: 20111001
  3. NIASPAN [Suspect]
     Indication: LOW DENSITY LIPOPROTEIN INCREASED
  4. LOVASA [Concomitant]
     Indication: BLOOD CHOLESTEROL INCREASED
     Dates: start: 20111001
  5. NIASPAN [Suspect]
     Indication: BLOOD TRIGLYCERIDES INCREASED
     Dates: start: 20110501
  6. CRESTOR [Concomitant]
     Indication: BLOOD TRIGLYCERIDES INCREASED
  7. LOVASA [Concomitant]
     Indication: BLOOD TRIGLYCERIDES INCREASED
  8. MULTI-VITAMIN [Concomitant]
     Indication: VITAMIN SUPPLEMENTATION
  9. LEVOTHYROXINE SODIUM [Concomitant]
     Indication: AUTOIMMUNE THYROIDITIS
  10. RAMIPRIL [Concomitant]
     Indication: HYPERTENSION
  11. ASPIRIN [Concomitant]
     Indication: ISCHAEMIC HEART DISEASE PROPHYLAXIS

REACTIONS (3)
  - BLOOD TRIGLYCERIDES INCREASED [None]
  - BLOOD CHOLESTEROL INCREASED [None]
  - LOW DENSITY LIPOPROTEIN INCREASED [None]
